FAERS Safety Report 7423530-7 (Version None)
Quarter: 2011Q2

REPORT INFORMATION
  Report Type: 
  Country: None (occurrence: None)
  Receive Date: 20110419
  Receipt Date: 20110407
  Transmission Date: 20111010
  Serious: Yes (Other)
  Sender: FDA-Public Use
  Company Number: PHFR2010IE03387

PATIENT
  Sex: Male

DRUGS (4)
  1. AMISULPRIDE [Suspect]
  2. CLOZARIL [Suspect]
     Dosage: 650 MG DAY
     Dates: start: 20101001
  3. EPILIM [Concomitant]
  4. CLOZARIL [Suspect]
     Indication: SCHIZOPHRENIA
     Dosage: 800 MG DAY
     Route: 048
     Dates: start: 20100318

REACTIONS (7)
  - ANTIPSYCHOTIC DRUG LEVEL INCREASED [None]
  - LEARNING DISABILITY [None]
  - DROOLING [None]
  - HALLUCINATION [None]
  - RASH [None]
  - VOMITING [None]
  - DERMATITIS CONTACT [None]
